FAERS Safety Report 11091243 (Version 1)
Quarter: 2015Q2

REPORT INFORMATION
  Report Type: Spontaneous
  Country: US (occurrence: None)
  Receive Date: 20150504
  Receipt Date: 20150504
  Transmission Date: 20150821
  Serious: Yes (Disabling)
  Sender: FDA-Public Use
  Company Number: None

PATIENT
  Age: 6 Year
  Sex: Male
  Weight: 21.77 kg

DRUGS (10)
  1. FLAXSEED [Concomitant]
     Active Substance: FLAX SEED
  2. CONCENTRACE MINERALS [Concomitant]
  3. CALM MAGNESIUM POWDER [Concomitant]
  4. KRILL OIL [Concomitant]
     Active Substance: DIETARY SUPPLEMENT
  5. JIGSAW MAGESIUM [Concomitant]
  6. POLYETHYLENE GLYCOL 3350. [Suspect]
     Active Substance: POLYETHYLENE GLYCOL 3350
     Indication: CONSTIPATION
     Dosage: 4 YEARS?17 G ONCE A DAY, ONCE DAILY, TAKEN BY MOUTH
     Route: 048
  7. KETOGENIC DIET [Concomitant]
     Active Substance: UNSPECIFIED INGREDIENT
  8. MEGA FOODS PROBIOTIC FOR KIDS [Concomitant]
  9. MEGA FOODS CHILDRENS DAILY VITAMINS [Concomitant]
  10. CALCIUM LACTATE [Concomitant]
     Active Substance: CALCIUM LACTATE

REACTIONS (13)
  - Tic [None]
  - Stomatitis [None]
  - Enuresis [None]
  - Metabolic acidosis [None]
  - Lethargy [None]
  - Dermatillomania [None]
  - Tremor [None]
  - Petit mal epilepsy [None]
  - Pruritus [None]
  - Encopresis [None]
  - Constipation [None]
  - Vomiting [None]
  - Myoclonic epilepsy [None]

NARRATIVE: CASE EVENT DATE: 20150501
